FAERS Safety Report 6775271-7 (Version None)
Quarter: 2010Q2

REPORT INFORMATION
  Report Type: 
  Country: None (occurrence: None)
  Receive Date: 20100617
  Receipt Date: 20100609
  Transmission Date: 20101027
  Serious: Yes (Hospitalization, Other)
  Sender: FDA-Public Use
  Company Number: GXKR2010GB06387

PATIENT
  Age: 60 Year
  Sex: Male

DRUGS (6)
  1. ATORVASTATIN (NGX) [Suspect]
     Route: 065
  2. SIMVASTATIN [Suspect]
     Route: 065
  3. DIPYRIDAMOLE [Concomitant]
  4. ACETYLSALICYLIC ACID [Concomitant]
  5. GLICLAZIDE [Concomitant]
  6. RAMIPRIL [Concomitant]

REACTIONS (8)
  - DIPLOPIA [None]
  - DYSARTHRIA [None]
  - DYSPHAGIA [None]
  - EYELID PTOSIS [None]
  - MUSCULAR WEAKNESS [None]
  - MYALGIA [None]
  - MYASTHENIA GRAVIS [None]
  - RESPIRATORY DEPRESSION [None]
